FAERS Safety Report 23616612 (Version 2)
Quarter: 2024Q3

REPORT INFORMATION
  Report Type: Spontaneous
  Country: US (occurrence: US)
  Receive Date: 20240311
  Receipt Date: 20240731
  Transmission Date: 20241017
  Serious: No
  Sender: BOEHRINGER INGELHEIM
  Company Number: US-BoehringerIngelheim-2024-BI-013767

PATIENT
  Age: 79 Year
  Sex: Female

DRUGS (2)
  1. JARDIANCE [Suspect]
     Active Substance: EMPAGLIFLOZIN
     Indication: Product used for unknown indication
     Route: 048
     Dates: start: 20230517
  2. JARDIANCE [Suspect]
     Active Substance: EMPAGLIFLOZIN
     Route: 048

REACTIONS (2)
  - Hypoacusis [Unknown]
  - Urinary tract infection [Unknown]

NARRATIVE: CASE EVENT DATE: 20240311
